FAERS Safety Report 4930440-3 (Version None)
Quarter: 2006Q1

REPORT INFORMATION
  Report Type: 
  Country: None (occurrence: None)
  Receive Date: 20060227
  Receipt Date: 20060217
  Transmission Date: 20060701
  Serious: Yes (Life-Threatening, Hospitalization, Other)
  Sender: FDA-Public Use
  Company Number: 2005-11-0019

PATIENT
  Age: 52 Year
  Sex: Female
  Weight: 50.8029 kg

DRUGS (4)
  1. INTRON A [Suspect]
     Indication: MALIGNANT MELANOMA
     Dosage: 15 MIU TIW
     Dates: start: 20041101, end: 20051001
  2. LEXAPRO [Concomitant]
  3. TYLENOL (CAPLET) [Concomitant]
  4. ASPIRIN [Concomitant]

REACTIONS (6)
  - ATELECTASIS [None]
  - CARDIAC ARREST [None]
  - CARDIAC FAILURE [None]
  - CARDIOMYOPATHY [None]
  - EJECTION FRACTION DECREASED [None]
  - MITRAL VALVE INCOMPETENCE [None]
